FAERS Safety Report 6979897-7 (Version None)
Quarter: 2010Q3

REPORT INFORMATION
  Report Type: 
  Country: None (occurrence: None)
  Receive Date: 20100914
  Receipt Date: 20100906
  Transmission Date: 20110219
  Serious: Yes (Hospitalization)
  Sender: FDA-Public Use
  Company Number: IE-SHIRE-SPV1-2010-01449

PATIENT
  Sex: Male

DRUGS (3)
  1. IDURSULFASE [Suspect]
     Indication: MUCOPOLYSACCHARIDOSIS II
     Dosage: 12MG, 1X/WEEK
     Route: 041
     Dates: start: 20080821
  2. ACETAMINOPHEN [Concomitant]
     Indication: PRODUCT USED FOR UNKNOWN INDICATION
     Dosage: ONE HOUR PRE-INFUSION
     Route: 048
  3. PIRITON [Concomitant]
     Indication: PRODUCT USED FOR UNKNOWN INDICATION
     Dosage: ONE HOUR PRE-INFUSION
     Route: 048

REACTIONS (3)
  - DIAGNOSTIC PROCEDURE [None]
  - INGUINAL HERNIA [None]
  - UMBILICAL HERNIA [None]
